FAERS Safety Report 16535482 (Version 7)
Quarter: 2019Q4

REPORT INFORMATION
  Report Type: Spontaneous
  Country: US (occurrence: US)
  Receive Date: 20190705
  Receipt Date: 20191205
  Transmission Date: 20200122
  Serious: Yes (Other)
  Sender: FDA-Public Use
  Company Number: US-PFIZER INC-2019282221

PATIENT
  Age: 62 Year
  Sex: Female

DRUGS (1)
  1. IBRANCE [Suspect]
     Active Substance: PALBOCICLIB
     Indication: BREAST CANCER FEMALE
     Dosage: 125 MG, UNK

REACTIONS (11)
  - Hypoacusis [Unknown]
  - Eating disorder [Unknown]
  - Memory impairment [Unknown]
  - Stress [Unknown]
  - Visual impairment [Unknown]
  - Neoplasm progression [Unknown]
  - Feeling abnormal [Unknown]
  - Cataract [Unknown]
  - Cognitive disorder [Unknown]
  - Tremor [Unknown]
  - Insomnia [Unknown]
